FAERS Safety Report 9129864 (Version 3)
Quarter: 2013Q1

REPORT INFORMATION
  Report Type: Report from Study
  Country: AU (occurrence: AU)
  Receive Date: 20130125
  Receipt Date: 20130325
  Transmission Date: 20140127
  Serious: Yes (Other)
  Sender: FDA-Public Use
  Company Number: AU-VERTEX PHARMACEUTICALS INC.-2012-026577

PATIENT
  Age: 54 Year
  Sex: Female
  Weight: 60 kg

DRUGS (3)
  1. VX-950 (TELAPREVIR) [Suspect]
     Indication: PRODUCT USED FOR UNKNOWN INDICATION
     Dosage: DOSAGE FORM: TABLET
     Route: 048
  2. RIBAVIRIN [Suspect]
     Indication: PRODUCT USED FOR UNKNOWN INDICATION
     Dosage: DOSAGE FORM: UNSPECIFIED
  3. PEG INTERFERON [Suspect]
     Indication: PRODUCT USED FOR UNKNOWN INDICATION
     Dosage: DOSAGE FORM: UNSPECIFIED

REACTIONS (5)
  - Weight decreased [Recovered/Resolved]
  - Anaemia [Recovered/Resolved]
  - Muscle spasms [Recovered/Resolved]
  - Lower respiratory tract infection [Recovered/Resolved]
  - Lethargy [Unknown]
